FAERS Safety Report 9819426 (Version 1)
Quarter: 2014Q1

REPORT INFORMATION
  Report Type: Spontaneous
  Country: US (occurrence: US)
  Receive Date: 20140115
  Receipt Date: 20140115
  Transmission Date: 20141002
  Serious: No
  Sender: FDA-Public Use
  Company Number: US-ENDO PHARMACEUTICALS INC.-HCDA20130117

PATIENT
  Age: 53 Year
  Sex: Female

DRUGS (2)
  1. HYDROCODONE BITARTRATE / ACETAMINOPHEN 10MG/325MG [Suspect]
     Indication: ARTHRALGIA
     Dosage: UNKNOWN
     Route: 048
     Dates: start: 2011, end: 201306
  2. HYDROCODONE BITARTRATE / ACETAMINOPHEN 10MG/325MG [Suspect]
     Dosage: UNKNOWN
     Route: 048
     Dates: start: 201306, end: 2013

REACTIONS (2)
  - Drug dose omission [Not Recovered/Not Resolved]
  - Withdrawal syndrome [Not Recovered/Not Resolved]
